FAERS Safety Report 5012474-6 (Version None)
Quarter: 2006Q2

REPORT INFORMATION
  Report Type: 
  Country: None (occurrence: None)
  Receive Date: 20060414
  Receipt Date: 20060117
  Transmission Date: 20061013
  Serious: No
  Sender: FDA-Public Use
  Company Number: 2006SP000289

PATIENT
  Age: 68 Year
  Sex: Female
  Weight: 78.9259 kg

DRUGS (9)
  1. LUNESTA [Suspect]
     Indication: INSOMNIA
     Dosage: 2 MG ORAL
     Route: 048
     Dates: start: 20050802, end: 20050801
  2. HYDROCHLOROTHIAZIDE [Concomitant]
  3. MULTIVITAMIN [Concomitant]
  4. ASPIRIN [Concomitant]
  5. CALCIUM GLUCONATE [Concomitant]
  6. VITAMIN D [Concomitant]
  7. MAGNESIUM [Concomitant]
  8. TOLTERODINE [Concomitant]
  9. AMLODIPINE [Concomitant]

REACTIONS (2)
  - MEMORY IMPAIRMENT [None]
  - SUICIDAL IDEATION [None]
